FAERS Safety Report 9357597 (Version 1)
Quarter: 2013Q2

REPORT INFORMATION
  Report Type: Spontaneous
  Country: FR (occurrence: FR)
  Receive Date: 20130620
  Receipt Date: 20130620
  Transmission Date: 20140414
  Serious: Yes (Hospitalization)
  Sender: FDA-Public Use
  Company Number: FR-BAYER-2013-073008

PATIENT
  Age: 27 Year
  Sex: Female

DRUGS (3)
  1. CIFLOX [Suspect]
     Indication: URINARY TRACT INFECTION
     Dosage: 500 MG, QD
     Dates: start: 20130324, end: 20130325
  2. BI-PROFENID [Suspect]
     Indication: URINARY TRACT INFECTION
     Dosage: 100 MG, QD
     Dates: start: 20130324, end: 20130325
  3. AMOXICILLINE [Concomitant]
     Dosage: UNK

REACTIONS (3)
  - Cell death [Recovered/Resolved]
  - Rash [Recovered/Resolved]
  - Lymphopenia [Recovered/Resolved]
